FAERS Safety Report 6417736-3 (Version None)
Quarter: 2009Q4

REPORT INFORMATION
  Report Type: 
  Country: None (occurrence: None)
  Receive Date: 20091026
  Receipt Date: 20091013
  Transmission Date: 20100525
  Serious: Yes (Death)
  Sender: FDA-Public Use
  Company Number: ADR40002009

PATIENT
  Sex: Male

DRUGS (3)
  1. SIMVASTATIN [Suspect]
     Dosage: OAL
     Route: 048
     Dates: start: 20080901, end: 20080101
  2. CITALOPRAM HYDROBROMIDE [Concomitant]
  3. MIRTAZAPINE [Concomitant]

REACTIONS (3)
  - COMPLETED SUICIDE [None]
  - CONDITION AGGRAVATED [None]
  - DEPRESSION [None]
